FAERS Safety Report 10803867 (Version 1)
Quarter: 2015Q1

REPORT INFORMATION
  Report Type: Spontaneous
  Country: DE (occurrence: DE)
  Receive Date: 20150217
  Receipt Date: 20150217
  Transmission Date: 20150721
  Serious: Yes (Other)
  Sender: FDA-Public Use
  Company Number: DE-ACTAVIS-2015-01958

PATIENT
  Age: 31 Year
  Sex: Female
  Weight: 84 kg

DRUGS (2)
  1. QUETIAPINE (UNKNOWN) [Suspect]
     Active Substance: QUETIAPINE
     Indication: BIPOLAR DISORDER
     Dosage: 300 MG, DAILY
     Route: 048
     Dates: start: 20131203, end: 20140910
  2. FOLIO [Concomitant]
     Active Substance: FOLIC ACID
     Indication: PROPHYLAXIS OF NEURAL TUBE DEFECT
     Dosage: 0.4 MG, DAILY
     Route: 048

REACTIONS (2)
  - Gestational diabetes [Recovered/Resolved]
  - Maternal exposure timing unspecified [Recovered/Resolved]
